FAERS Safety Report 11734816 (Version 2)
Quarter: 2015Q4

REPORT INFORMATION
  Report Type: Spontaneous
  Country: JP (occurrence: JP)
  Receive Date: 20151113
  Receipt Date: 20151120
  Transmission Date: 20160304
  Serious: Yes (Other)
  Sender: FDA-Public Use
  Company Number: JP-BRISTOL-MYERS SQUIBB COMPANY-BMS-2015-023733

PATIENT
  Age: 70 Year
  Sex: Male

DRUGS (2)
  1. ERBITUX [Suspect]
     Active Substance: CETUXIMAB
     Indication: GINGIVAL CANCER
     Dosage: 250 MG/M2, QWK
     Route: 041
     Dates: start: 20150317
  2. CARBOPLATIN. [Suspect]
     Active Substance: CARBOPLATIN
     Indication: GINGIVAL CANCER
     Dosage: 1 DF, UNK
     Route: 041
     Dates: start: 20150317, end: 20150407

REACTIONS (1)
  - Platelet count decreased [Recovered/Resolved]

NARRATIVE: CASE EVENT DATE: 20150407
